FAERS Safety Report 8923333 (Version 2)
Quarter: 2013Q1

REPORT INFORMATION
  Report Type: Spontaneous
  Country: US (occurrence: US)
  Receive Date: 20121123
  Receipt Date: 20130105
  Transmission Date: 20140127
  Serious: No
  Sender: FDA-Public Use
  Company Number: US-JNJFOC-20121103000

PATIENT
  Age: 22 Year
  Sex: Female
  Weight: 103.97 kg

DRUGS (8)
  1. INVEGA SUSTENNA [Suspect]
     Indication: BIPOLAR DISORDER
     Route: 030
     Dates: start: 20121102
  2. INVEGA SUSTENNA [Suspect]
     Indication: BIPOLAR DISORDER
     Route: 030
     Dates: start: 20121109
  3. INVEGA SUSTENNA [Suspect]
     Indication: BIPOLAR DISORDER
     Route: 030
     Dates: start: 20121207
  4. INTRAUTERINE DEVICE [Concomitant]
     Indication: CONTRACEPTION
  5. INVEGA [Concomitant]
     Dosage: FOR 1 WEEK
     Route: 048
  6. INVEGA [Concomitant]
     Dosage: PRIOR TO INJECTION
     Route: 048
  7. ATIVAN [Concomitant]
     Dosage: 1 MG HALF TABLET AS NECESSARY
     Route: 048
  8. AMBIEN [Concomitant]
     Route: 048

REACTIONS (6)
  - Injection site nodule [Unknown]
  - Drug administered at inappropriate site [Unknown]
  - Injection site erythema [Not Recovered/Not Resolved]
  - Injection site pain [Not Recovered/Not Resolved]
  - Injection site mass [Not Recovered/Not Resolved]
  - Vomiting [Unknown]
